FAERS Safety Report 8382866-6 (Version None)
Quarter: 2012Q2

REPORT INFORMATION
  Report Type: 
  Country: None (occurrence: None)
  Receive Date: 20120524
  Receipt Date: 20120521
  Transmission Date: 20120825
  Serious: Yes (Other)
  Sender: FDA-Public Use
  Company Number: AU-SANOFI-AVENTIS-2012SA035753

PATIENT
  Age: 64 Year
  Sex: Female

DRUGS (7)
  1. ALL OTHER THERAPEUTIC PRODUCTS [Concomitant]
  2. MAGNESIUM [Concomitant]
  3. PANTOPRAZOLE [Concomitant]
  4. ARAVA [Suspect]
     Route: 048
     Dates: start: 20081009
  5. MOBIC [Concomitant]
  6. ALL OTHER THERAPEUTIC PRODUCTS [Concomitant]
  7. CALCIUM CARBONATE [Concomitant]

REACTIONS (1)
  - BREAST CANCER [None]
